FAERS Safety Report 6770450-7 (Version None)
Quarter: 2010Q2

REPORT INFORMATION
  Report Type: 
  Country: None (occurrence: None)
  Receive Date: 20100615
  Receipt Date: 20100603
  Transmission Date: 20101027
  Serious: Yes (Other)
  Sender: FDA-Public Use
  Company Number: US-PFIZER INC-2010070161

PATIENT
  Sex: Female
  Weight: 65 kg

DRUGS (15)
  1. CHANTIX [Suspect]
     Indication: SMOKING CESSATION THERAPY
     Dosage: UNK
     Route: 048
     Dates: start: 20100527, end: 20100603
  2. OXYCODONE [Suspect]
     Indication: PAIN
     Dosage: UNK
  3. MOMETASONE FUROATE [Concomitant]
     Indication: HYPERSENSITIVITY
     Dosage: 220 UG, 2X/DAY
  4. MOMETASONE FUROATE [Concomitant]
     Indication: ASTHMA
  5. AZELASTINE HYDROCHLORIDE [Concomitant]
     Indication: HYPERSENSITIVITY
     Dosage: 2 SPRAYS IN EACH NOSTRIL 2X/DAY
  6. MONTELUKAST SODIUM [Concomitant]
     Indication: ASTHMA
     Dosage: 10 MG, 1X/DAY
  7. CLARITIN [Concomitant]
     Indication: HYPERSENSITIVITY
     Dosage: 10 MG, 1X/DAY
  8. NASONEX [Concomitant]
     Indication: HYPERSENSITIVITY
     Dosage: 50 UG, 1X/DAY
  9. FORADIL [Concomitant]
     Indication: ASTHMA
     Dosage: 12 UG, 2X/DAY
  10. PREVACID [Concomitant]
     Indication: GASTROOESOPHAGEAL REFLUX DISEASE
     Dosage: 60 MG, 2X/DAY
     Route: 048
     Dates: start: 19950101
  11. NEURONTIN [Concomitant]
     Indication: BACK PAIN
     Dosage: 900 MG, 1X/DAY
     Route: 048
  12. ALEVE (CAPLET) [Concomitant]
     Indication: PAIN
     Dosage: UNK
  13. VALIUM [Concomitant]
     Indication: DEPRESSION
     Dosage: 5 MG, UNK
  14. ULTRAM [Concomitant]
     Indication: BACK PAIN
     Dosage: 100 MG, 3 TO 4 TIMES A DAY AS NEEDED
     Route: 048
  15. NICORETTE [Concomitant]
     Indication: SMOKING CESSATION THERAPY
     Dosage: 6 TO 7 GUMS IN A DAY

REACTIONS (4)
  - ANXIETY [None]
  - EMOTIONAL DISORDER [None]
  - PSYCHOMOTOR HYPERACTIVITY [None]
  - SLEEP DISORDER [None]
